FAERS Safety Report 6454696-3 (Version None)
Quarter: 2009Q4

REPORT INFORMATION
  Report Type: 
  Country: None (occurrence: None)
  Receive Date: 20091124
  Receipt Date: 20091112
  Transmission Date: 20100525
  Serious: Yes (Hospitalization)
  Sender: FDA-Public Use
  Company Number: FI-ELI_LILLY_AND_COMPANY-FI200910000747

PATIENT
  Sex: Female
  Weight: 53 kg

DRUGS (14)
  1. PEMETREXED [Suspect]
     Indication: NON-SMALL CELL LUNG CANCER
     Dosage: 500 MG/M2, DAY ONE EVERY 21 DAYS
     Route: 042
     Dates: start: 20090527, end: 20090729
  2. PEMETREXED [Suspect]
     Dosage: UNK, EVERY 3 WEEKS
     Route: 042
     Dates: start: 20090929
  3. PEMETREXED [Suspect]
     Dosage: DOSE REDUCED BY 25%
     Route: 042
  4. CISPLATIN [Suspect]
     Indication: NON-SMALL CELL LUNG CANCER
     Dosage: 75 MG/M2, DAY ONE EVERY 21 DAYS
     Route: 042
     Dates: start: 20090527, end: 20090729
  5. FOLIC ACID [Concomitant]
     Indication: PROPHYLAXIS
     Dosage: UNK, UNK
     Dates: start: 20090519
  6. VITAMIN B-12 [Concomitant]
     Indication: PROPHYLAXIS
     Dates: start: 20090519
  7. DEXAMETHASONE TAB [Concomitant]
     Indication: PROPHYLAXIS
     Dosage: UNK, UNK
     Dates: start: 20090526
  8. BISOPROLOL [Concomitant]
     Indication: HYPERTENSION
     Dates: start: 19980101
  9. NILVADIPIN [Concomitant]
     Indication: HYPERTENSION
     Dates: start: 19980101
  10. LEVOTHYROXINE SODIUM [Concomitant]
     Indication: HYPOTHYROIDISM
     Dates: start: 19980101
  11. HYDROCHLOROTHIAZIDE [Concomitant]
     Indication: HYPERTENSION
     Dates: start: 19980101
  12. TEMAZEPAM [Concomitant]
     Indication: INSOMNIA
     Dates: start: 20090528
  13. ESTRADIOL [Concomitant]
     Indication: MENOPAUSAL SYMPTOMS
     Dates: start: 20090929
  14. LORAZEPAM [Concomitant]
     Indication: INSOMNIA
     Dates: start: 20090617

REACTIONS (1)
  - BILE DUCT OBSTRUCTION [None]
